FAERS Safety Report 4504823-X (Version None)
Quarter: 2004Q3

REPORT INFORMATION
  Report Type: 
  Country: None (occurrence: None)
  Receive Date: 20040927
  Receipt Date: 20040708
  Transmission Date: 20050211
  Serious: No
  Sender: FDA-Public Use
  Company Number: USA040772125

PATIENT
  Age: 73 Year
  Sex: Male
  Weight: 75 kg

DRUGS (8)
  1. STRATTERA [Suspect]
     Indication: ATTENTION DEFICIT/HYPERACTIVITY DISORDER
     Dosage: 80 MG/1 DAY
     Dates: start: 20040702
  2. BUSPIRONE [Concomitant]
  3. DILANTIN [Concomitant]
  4. VITAMINS WITH MINERALS [Concomitant]
  5. GREEN TEA [Concomitant]
  6. GINKOBA (GINKGO BILOBA EXTRACT) [Concomitant]
  7. ASPIRIN [Concomitant]
  8. HYTRIN [Concomitant]

REACTIONS (2)
  - POLLAKIURIA [None]
  - URINE FLOW DECREASED [None]
